FAERS Safety Report 4286879-5 (Version None)
Quarter: 2004Q1

REPORT INFORMATION
  Report Type: 
  Country: None (occurrence: None)
  Receive Date: 20040121
  Receipt Date: 20030609
  Transmission Date: 20041129
  Serious: Yes (Other)
  Sender: FDA-Public Use
  Company Number: A03200301260

PATIENT
  Age: 74 Year
  Sex: Female
  Weight: 56.6996 kg

DRUGS (7)
  1. PLAVIX [Suspect]
     Indication: CARDIAC VALVE DISEASE
     Dosage: 75 MG QD - ORAL
     Route: 048
     Dates: start: 20000801
  2. PLAVIX [Suspect]
     Indication: CEREBROVASCULAR ACCIDENT
     Dosage: 75 MG QD - ORAL
     Route: 048
     Dates: start: 20000801
  3. ACETYLSALICYLIC ACID SRT [Concomitant]
  4. GLYCERYL TRINITRATE [Concomitant]
  5. LEVOTHYROXINE SODIUM [Concomitant]
  6. NAPROXEN [Concomitant]
  7. ESOMEPRAZOLE [Concomitant]

REACTIONS (2)
  - CEREBROVASCULAR ACCIDENT [None]
  - DRUG INEFFECTIVE [None]
